FAERS Safety Report 8908701 (Version 2)
Quarter: 2012Q4

REPORT INFORMATION
  Report Type: Report from Study
  Country: CA (occurrence: CA)
  Receive Date: 20121114
  Receipt Date: 20121122
  Transmission Date: 20130627
  Serious: Yes (Hospitalization)
  Sender: FDA-Public Use
  Company Number: CA-ROCHE-1154737

PATIENT
  Age: 41 Year
  Sex: Male
  Weight: 111.68 kg

DRUGS (6)
  1. BEVACIZUMAB [Suspect]
     Indication: GLIOBLASTOMA
     Route: 042
     Dates: start: 20120730, end: 20121105
  2. DEXAMETHASONE [Concomitant]
  3. RANITIDINE [Concomitant]
  4. CARBAMAZEPINE [Concomitant]
  5. LAMOTRIGINE [Concomitant]
  6. GABAPENTIN [Concomitant]

REACTIONS (2)
  - Convulsion [Recovered/Resolved]
  - Neoplasm progression [Not Recovered/Not Resolved]
